FAERS Safety Report 9910309 (Version 1)
Quarter: 2014Q1

REPORT INFORMATION
  Report Type: Spontaneous
  Country: US (occurrence: US)
  Receive Date: 20140219
  Receipt Date: 20140219
  Transmission Date: 20141002
  Serious: Yes (Other)
  Sender: FDA-Public Use
  Company Number: US-UCBSA-112336

PATIENT
  Age: 46 Year
  Sex: Female

DRUGS (2)
  1. VIMPAT [Suspect]
     Dosage: 12 MONTHS; DAILY DOSE: 250 MG PER DAY IN TWO DIVIDED DOSES
  2. ZONISAMIDE [Concomitant]
     Dosage: FOR APPROXIMATELY 4 YEARS

REACTIONS (1)
  - Myocardial infarction [Unknown]
